FAERS Safety Report 12756117 (Version 2)
Quarter: 2016Q4

REPORT INFORMATION
  Report Type: Report from Study
  Country: GB (occurrence: GB)
  Receive Date: 20160916
  Receipt Date: 20161026
  Transmission Date: 20170207
  Serious: Yes (Hospitalization)
  Sender: FDA-Public Use
  Company Number: GB-ASTRAZENECA-2016SE97748

PATIENT
  Age: 29765 Day
  Sex: Female
  Weight: 48.8 kg

DRUGS (5)
  1. TAGRISSO [Suspect]
     Active Substance: OSIMERTINIB
     Indication: NON-SMALL CELL LUNG CANCER
     Route: 048
     Dates: start: 20160906
  2. CYCLIZINE [Concomitant]
     Active Substance: CYCLIZINE
     Indication: BLOOD CHOLESTEROL
     Route: 048
     Dates: start: 20160610
  3. HYLOTEARS [Concomitant]
     Indication: BLOOD CHOLESTEROL
     Route: 048
     Dates: start: 20160607
  4. AMLODIPINE [Concomitant]
     Active Substance: AMLODIPINE BESYLATE
     Indication: HYPERTENSION
     Route: 048
  5. SIMVASTATIN. [Concomitant]
     Active Substance: SIMVASTATIN
     Indication: BLOOD CHOLESTEROL
     Route: 048

REACTIONS (2)
  - Pulmonary sepsis [Recovered/Resolved]
  - Dyspnoea [Recovered/Resolved]

NARRATIVE: CASE EVENT DATE: 20160908
